FAERS Safety Report 5130227-5 (Version None)
Quarter: 2006Q4

REPORT INFORMATION
  Report Type: 
  Country: None (occurrence: None)
  Receive Date: 20061019
  Receipt Date: 20061009
  Transmission Date: 20070319
  Serious: Yes (Life-Threatening, Hospitalization)
  Sender: FDA-Public Use
  Company Number: AT-JNJFOC-20061002531

PATIENT
  Sex: Male

DRUGS (16)
  1. HALDOL [Suspect]
     Indication: DRUG DEPENDENCE
     Route: 065
  2. HALDOL [Suspect]
     Indication: ALCOHOL WITHDRAWAL SYNDROME
     Dosage: 5-10MG AMPOULE
     Route: 065
  3. CATAPRESAN [Concomitant]
     Indication: HYPERTENSION
  4. LORAZEPAM [Concomitant]
     Indication: INSOMNIA
  5. LORAZEPAM [Concomitant]
     Indication: ANXIETY
  6. TRILEPTAL [Concomitant]
     Indication: EPILEPSY
  7. AUGMENTIN [Concomitant]
     Indication: ANTIBIOTIC PROPHYLAXIS
  8. NEXIUM [Concomitant]
     Indication: GASTROOESOPHAGEAL REFLUX DISEASE
  9. OMNIFLORA [Concomitant]
     Indication: ENTERITIS
     Dosage: 3
  10. BENEURAN COMP [Concomitant]
     Indication: NERVE INJURY
  11. BENEURAN [Concomitant]
     Indication: NERVE INJURY
  12. CEVITOL [Concomitant]
     Indication: VITAMIN C DEFICIENCY
  13. MUCOSOLVAN [Concomitant]
     Indication: RESPIRATORY DISORDER
  14. LOVENOX [Concomitant]
     Indication: ISCHAEMIC HEART DISEASE PROPHYLAXIS
  15. DOMINAL [Concomitant]
     Indication: PSYCHOTIC DISORDER
     Dosage: 40-80 MG
  16. NUTRISON [Concomitant]
     Indication: INFUSION

REACTIONS (1)
  - ACUTE MYOCARDIAL INFARCTION [None]
